FAERS Safety Report 13963865 (Version 1)
Quarter: 2017Q3

REPORT INFORMATION
  Report Type: Spontaneous
  Country: US (occurrence: None)
  Receive Date: 20170913
  Receipt Date: 20170913
  Transmission Date: 20171128
  Serious: Yes (Life-Threatening, Hospitalization)
  Sender: FDA-Public Use
  Company Number: None

PATIENT
  Age: 62 Year
  Sex: Female
  Weight: 50.12 kg

DRUGS (8)
  1. CALAN SR [Concomitant]
     Active Substance: VERAPAMIL HYDROCHLORIDE
  2. PREPOPIK [Suspect]
     Active Substance: ANHYDROUS CITRIC ACID\MAGNESIUM OXIDE\SODIUM PICOSULFATE
     Indication: COLONOSCOPY
     Dosage: 2 PACKETS 1 PACKET IN PM 1 PACKET IN AM BY MOUTH
     Route: 048
     Dates: start: 20170731, end: 20170731
  3. THERATEARS [Concomitant]
     Active Substance: CARBOXYMETHYLCELLULOSE SODIUM
  4. TRAZODONE [Concomitant]
     Active Substance: TRAZODONE HYDROCHLORIDE
  5. EVISTA [Concomitant]
     Active Substance: RALOXIFENE HYDROCHLORIDE
  6. ALIGN PROBIOTIC [Concomitant]
  7. CLARITIN [Concomitant]
     Active Substance: LORATADINE
  8. CITRACAL MAXIMUM DOSE [Concomitant]

REACTIONS (12)
  - Swelling face [None]
  - Renal pain [None]
  - Muscle spasms [None]
  - Muscle swelling [None]
  - Memory impairment [None]
  - Seizure [None]
  - Speech disorder [None]
  - Blister [None]
  - Weight increased [None]
  - Blood sodium decreased [None]
  - Headache [None]
  - Migraine [None]

NARRATIVE: CASE EVENT DATE: 20170731
